FAERS Safety Report 4334638-7 (Version None)
Quarter: 2004Q2

REPORT INFORMATION
  Report Type: 
  Country: None (occurrence: None)
  Receive Date: 20040408
  Receipt Date: 20030715
  Transmission Date: 20050107
  Serious: Yes (Other)
  Sender: FDA-Public Use
  Company Number: PHNU2003DE02724

PATIENT
  Age: 81 Year
  Sex: Female

DRUGS (7)
  1. VOLTAREN [Suspect]
     Indication: OSTEOARTHRITIS
     Dosage: UNK MG, UNK
     Route: 048
     Dates: end: 20020101
  2. VOLTAREN [Suspect]
     Dosage: 50 MG, BID
     Dates: start: 20020101
  3. DICLOFENAC SODIUM [Suspect]
     Indication: OSTEOARTHRITIS
     Dosage: 100 MG, BID
     Route: 048
     Dates: start: 20020101
  4. BEXTRA [Suspect]
     Dosage: 1 DF, QID
     Route: 048
  5. VITAMIN E [Concomitant]
  6. VITAMIN C [Concomitant]
  7. EUPHYLONG [Concomitant]

REACTIONS (6)
  - FATIGUE [None]
  - FEELING ABNORMAL [None]
  - HOARSENESS [None]
  - INDIFFERENCE [None]
  - OVERDOSE [None]
  - VOCAL CORD PARALYSIS [None]
